FAERS Safety Report 10575441 (Version 1)
Quarter: 2014Q4

REPORT INFORMATION
  Report Type: Spontaneous
  Country: GB (occurrence: None)
  Receive Date: 20141107
  Receipt Date: 20141107
  Transmission Date: 20150529
  Serious: Yes (Life-Threatening, Other)
  Sender: FDA-Public Use
  Company Number: GB-ALKEM-000752

PATIENT
  Age: 87 Year
  Sex: Male
  Weight: 60.5 kg

DRUGS (6)
  1. DALTEPARIN [Concomitant]
     Active Substance: DALTEPARIN
  2. PARACETAMOL [Concomitant]
     Active Substance: ACETAMINOPHEN
  3. DIAZEPAM. [Concomitant]
     Active Substance: DIAZEPAM
  4. QUETIAPINE [Suspect]
     Active Substance: QUETIAPINE
     Indication: ANXIETY
     Dosage: 37.50000000000-MG-1.00 /ORAL TIMES PER -1.00DAYS
     Route: 048
     Dates: start: 20140926, end: 20141007
  5. LACTULOSE. [Concomitant]
     Active Substance: LACTULOSE
  6. MEMANTINE [Concomitant]
     Active Substance: MEMANTINE

REACTIONS (7)
  - Tremor [None]
  - Hyperpyrexia [None]
  - Dehydration [None]
  - Confusional state [None]
  - Acidosis [None]
  - Hypophagia [None]
  - Hyperhidrosis [None]

NARRATIVE: CASE EVENT DATE: 20111007
